FAERS Safety Report 23304236 (Version 2)
Quarter: 2023Q4

REPORT INFORMATION
  Report Type: Spontaneous
  Country: DE (occurrence: DE)
  Receive Date: 20231218
  Receipt Date: 20231227
  Transmission Date: 20240110
  Serious: Yes (Other)
  Sender: FDA-Public Use
  Company Number: DE-SANOFI-01874315

PATIENT
  Age: 54 Year
  Sex: Male

DRUGS (1)
  1. DUPIXENT [Suspect]
     Active Substance: DUPILUMAB
     Dosage: UNK
     Dates: start: 20180910

REACTIONS (5)
  - Corneal perforation [Unknown]
  - Optic neuritis [Unknown]
  - Eye discharge [Unknown]
  - Intraocular pressure increased [Unknown]
  - Corneal transplant [Unknown]

NARRATIVE: CASE EVENT DATE: 20230916
